FAERS Safety Report 6682318-5 (Version None)
Quarter: 2010Q2

REPORT INFORMATION
  Report Type: 
  Country: None (occurrence: None)
  Receive Date: 20100414
  Receipt Date: 20100414
  Transmission Date: 20101027
  Serious: Yes (Hospitalization)
  Sender: FDA-Public Use
  Company Number: None

PATIENT
  Age: 80 Year
  Sex: Male

DRUGS (1)
  1. FLUOROURACIL [Suspect]
     Indication: RECTAL CANCER
     Dosage: 2065 MG QWEEK IV
     Route: 042
     Dates: start: 20100125, end: 20100127

REACTIONS (2)
  - CARDIOPULMONARY FAILURE [None]
  - CHEST PAIN [None]
